FAERS Safety Report 4395025-9 (Version None)
Quarter: 2004Q2

REPORT INFORMATION
  Report Type: 
  Country: None (occurrence: None)
  Receive Date: 20040621
  Receipt Date: 20010911
  Transmission Date: 20050107
  Serious: Yes (Hospitalization)
  Sender: FDA-Public Use
  Company Number: KII-2001-0009532

PATIENT
  Age: 54 Year
  Sex: Male

DRUGS (2)
  1. OXYCONTIN [Suspect]
     Dosage: 50 MG, BID
  2. ALCOHOL (ETHANOL) [Suspect]
     Dosage: 6 BOTTLE

REACTIONS (1)
  - CONVULSION [None]
